FAERS Safety Report 5007018-9 (Version None)
Quarter: 2006Q2

REPORT INFORMATION
  Report Type: 
  Country: None (occurrence: None)
  Receive Date: 20060519
  Receipt Date: 20060404
  Transmission Date: 20061013
  Serious: Yes (Hospitalization)
  Sender: FDA-Public Use
  Company Number: FR-NOVOPROD-252244

PATIENT
  Age: 78 Year
  Sex: Male

DRUGS (8)
  1. INSULATARD FLEXPEN [Suspect]
     Indication: DIABETES MELLITUS
     Dosage: 34 IU, QD
     Route: 058
     Dates: start: 19860101
  2. ACTOS [Concomitant]
     Route: 048
     Dates: end: 20051116
  3. FONZYLANE [Concomitant]
     Route: 048
     Dates: end: 20051116
  4. NOOTROPYL [Concomitant]
     Route: 048
     Dates: end: 20051116
  5. RISORDAN [Concomitant]
     Dosage: 60 MG, QD
     Route: 048
     Dates: end: 20051116
  6. COZAAR [Concomitant]
     Dosage: 50 MG, QD
     Route: 048
     Dates: end: 20051116
  7. PRAVASTATIN [Concomitant]
  8. PLAVIX [Concomitant]

REACTIONS (4)
  - CONFUSIONAL STATE [None]
  - DYSPNOEA [None]
  - LEFT VENTRICULAR FAILURE [None]
  - OEDEMA [None]
